FAERS Safety Report 25864466 (Version 1)
Quarter: 2025Q3

REPORT INFORMATION
  Report Type: Spontaneous
  Country: EU (occurrence: EU)
  Receive Date: 20250930
  Receipt Date: 20250930
  Transmission Date: 20251021
  Serious: Yes (Hospitalization)
  Sender: JOHNSON AND JOHNSON
  Company Number: EU-JNJFOC-20250935663

PATIENT
  Age: 57 Year
  Sex: Female

DRUGS (1)
  1. INFLIXIMAB [Suspect]
     Active Substance: INFLIXIMAB
     Indication: Pityriasis rubra pilaris
     Route: 041

REACTIONS (2)
  - Dermatopathic lymphadenopathy [Unknown]
  - Off label use [Unknown]
